FAERS Safety Report 9699245 (Version 1)
Quarter: 2013Q4

REPORT INFORMATION
  Report Type: Spontaneous
  Country: US (occurrence: US)
  Receive Date: 20131120
  Receipt Date: 20131120
  Transmission Date: 20140711
  Serious: No
  Sender: FDA-Public Use
  Company Number: US-GILEAD-2008-0015174

PATIENT
  Age: 63 Year
  Sex: Female

DRUGS (13)
  1. LETAIRIS [Suspect]
     Indication: PULMONARY ARTERIAL HYPERTENSION
     Route: 048
     Dates: start: 20080108, end: 20080125
  2. COUMADIN [Concomitant]
  3. LISINOPRIL [Concomitant]
  4. ALDACTONE [Concomitant]
  5. LASIX [Concomitant]
  6. ALLOPURINOL [Concomitant]
  7. PROTONIX [Concomitant]
  8. REQUIP [Concomitant]
  9. CYMBALTA [Concomitant]
  10. DARVOCET [Concomitant]
  11. AMBIEN [Concomitant]
  12. XANAX [Concomitant]
  13. IMODIUM [Concomitant]

REACTIONS (6)
  - Hyperhidrosis [Recovered/Resolved]
  - Hypersensitivity [Recovered/Resolved]
  - Sinusitis [Recovered/Resolved]
  - Nasal congestion [Recovered/Resolved]
  - Headache [Recovered/Resolved]
  - Abdominal pain [Recovered/Resolved]
